FAERS Safety Report 5086427-6 (Version None)
Quarter: 2006Q3

REPORT INFORMATION
  Report Type: 
  Country: None (occurrence: None)
  Receive Date: 20060703
  Receipt Date: 20060324
  Transmission Date: 20061208
  Serious: No
  Sender: FDA-Public Use
  Company Number: 2006S1002602

PATIENT
  Age: 26 Year
  Sex: Male
  Weight: 63.5036 kg

DRUGS (7)
  1. CLOZAPINE [Suspect]
     Indication: SCHIZOAFFECTIVE DISORDER
     Dosage: SEE IMAGE
     Route: 048
     Dates: start: 20040213
  2. CLOZAPINE [Suspect]
     Indication: SCHIZOAFFECTIVE DISORDER
     Dosage: SEE IMAGE
     Route: 048
     Dates: start: 20040213
  3. PERPHENAZINE [Concomitant]
  4. BENZATROPINE [Concomitant]
  5. DOCUSATE [Concomitant]
  6. TOCOPHEROL CONCENTRATE CAP [Concomitant]
  7. KETOCONAZOLE [Concomitant]

REACTIONS (1)
  - GRANULOCYTOPENIA [None]
